FAERS Safety Report 5509362-5 (Version None)
Quarter: 2007Q4

REPORT INFORMATION
  Report Type: 
  Country: None (occurrence: None)
  Receive Date: 20071106
  Receipt Date: 20071101
  Transmission Date: 20080405
  Serious: Yes (Other)
  Sender: FDA-Public Use
  Company Number: S07-USA-05249-01

PATIENT
  Age: 76 Year
  Sex: Female

DRUGS (3)
  1. THYROID TAB [Suspect]
     Indication: HYPOTHYROIDISM
     Dosage: 60 MG TID PO
     Route: 048
     Dates: start: 20040101, end: 20071009
  2. THYROID TAB [Suspect]
     Indication: HYPOTHYROIDISM
     Dosage: 60 MG QD PO
     Route: 048
     Dates: start: 20071010
  3. THYROID TAB [Suspect]
     Indication: HYPOTHYROIDISM
     Dates: start: 19970101, end: 20040101

REACTIONS (2)
  - MYALGIA [None]
  - WEIGHT INCREASED [None]
